FAERS Safety Report 8374634-6 (Version None)
Quarter: 2012Q2

REPORT INFORMATION
  Report Type: 
  Country: None (occurrence: None)
  Receive Date: 20120521
  Receipt Date: 20120217
  Transmission Date: 20120825
  Serious: No
  Sender: FDA-Public Use
  Company Number: US-ASTRAZENECA-2012SE13808

PATIENT
  Sex: Male

DRUGS (2)
  1. PRILOSEC OTC [Suspect]
     Route: 048
     Dates: start: 20120215, end: 20120217
  2. PRILOSEC OTC [Suspect]
     Route: 048

REACTIONS (2)
  - DYSPNOEA [None]
  - COUGH [None]
